FAERS Safety Report 9409541 (Version 1)
Quarter: 2013Q3

REPORT INFORMATION
  Report Type: Spontaneous
  Country: IT (occurrence: IT)
  Receive Date: 20130719
  Receipt Date: 20130719
  Transmission Date: 20140515
  Serious: Yes (Hospitalization, Other)
  Sender: FDA-Public Use
  Company Number: IT-JNJFOC-20130707730

PATIENT
  Sex: 0

DRUGS (3)
  1. DOXORUBICIN [Suspect]
     Indication: NEUROBLASTOMA
     Dosage: 48 HOUR INFUSION
     Route: 042
  2. TOPOTECAN [Suspect]
     Indication: NEUROBLASTOMA
     Dosage: FOR 5 DAYS
     Route: 065
  3. VINCRISTINE [Suspect]
     Indication: NEUROBLASTOMA
     Dosage: 48 HOUR INFUSION
     Route: 042

REACTIONS (8)
  - Neuroblastoma [Unknown]
  - Stomatitis [Unknown]
  - Drug ineffective [Unknown]
  - Neutropenia [Unknown]
  - Thrombocytopenia [Unknown]
  - Anaemia [Unknown]
  - Hospitalisation [Unknown]
  - Off label use [Unknown]
